FAERS Safety Report 6330950-0 (Version None)
Quarter: 2009Q3

REPORT INFORMATION
  Report Type: 
  Country: None (occurrence: None)
  Receive Date: 20090827
  Receipt Date: 20090818
  Transmission Date: 20100115
  Serious: Yes (Other)
  Sender: FDA-Public Use
  Company Number: GB-B.I. PHARMACEUTICALS,INC./RIDGEFIELD-2009-UK-00730UK

PATIENT
  Age: 66 Year
  Sex: Female

DRUGS (4)
  1. DIXARIT [Suspect]
     Indication: MENOPAUSAL SYMPTOMS
     Dosage: 1 DF 3/1 DAYS
     Route: 048
     Dates: start: 20090728, end: 20090729
  2. DILZEM XL [Concomitant]
     Dosage: 120 MG
     Route: 048
  3. OMEPRAZOLE [Concomitant]
     Dosage: 20 MG
     Route: 048
  4. TRAMADOL HCL [Concomitant]
     Route: 048

REACTIONS (3)
  - HYPERHIDROSIS [None]
  - MENOPAUSAL SYMPTOMS [None]
  - MUSCLE SPASMS [None]
